FAERS Safety Report 14112597 (Version 3)
Quarter: 2017Q4

REPORT INFORMATION
  Report Type: Report from Study
  Country: None (occurrence: AU)
  Receive Date: 20171020
  Receipt Date: 20171215
  Transmission Date: 20180321
  Serious: Yes (Hospitalization)
  Sender: FDA-Public Use
  Company Number: AU-ABBVIE-17S-008-2133610-00

PATIENT
  Age: 83 Year
  Sex: Male

DRUGS (1)
  1. LUCRIN DEPOT [Suspect]
     Active Substance: LEUPROLIDE ACETATE
     Indication: PROSTATE CANCER
     Route: 030
     Dates: start: 2017

REACTIONS (3)
  - Fatigue [Unknown]
  - Malaise [Recovering/Resolving]
  - Pelvic cyst [Recovered/Resolved]

NARRATIVE: CASE EVENT DATE: 2017
